FAERS Safety Report 10611878 (Version 2)
Quarter: 2014Q4

REPORT INFORMATION
  Report Type: Spontaneous
  Country: US (occurrence: US)
  Receive Date: 20141126
  Receipt Date: 20141223
  Transmission Date: 20150529
  Serious: Yes (Hospitalization, Other)
  Sender: FDA-Public Use
  Company Number: US-GLAXOSMITHKLINE-US2014GSK027452

PATIENT
  Sex: Female
  Weight: 95.24 kg

DRUGS (1)
  1. ADVAIR DISKUS [Suspect]
     Active Substance: FLUTICASONE PROPIONATE\SALMETEROL XINAFOATE
     Indication: PRODUCT USED FOR UNKNOWN INDICATION
     Dosage: 1 PUFF(S), BID
     Route: 055

REACTIONS (6)
  - Chronic obstructive pulmonary disease [Recovering/Resolving]
  - Acute kidney injury [Recovered/Resolved]
  - Cardioversion [Unknown]
  - Atrial fibrillation [Unknown]
  - Dyspnoea [Unknown]
  - Wheezing [Unknown]
